FAERS Safety Report 6307769-X (Version None)
Quarter: 2009Q3

REPORT INFORMATION
  Report Type: 
  Country: None (occurrence: None)
  Receive Date: 20090813
  Receipt Date: 20071227
  Transmission Date: 20100115
  Serious: Yes (Hospitalization, Other)
  Sender: FDA-Public Use
  Company Number: US-ASTRAZENECA-2006UW04560

PATIENT
  Age: 43 Year
  Sex: Male
  Weight: 91.2 kg

DRUGS (29)
  1. SEROQUEL [Suspect]
     Indication: BIPOLAR DISORDER
     Dosage: 25-100 MG
     Route: 048
     Dates: start: 20030122, end: 20051115
  2. SEROQUEL [Suspect]
     Indication: SLEEP DISORDER
     Dosage: 25-100 MG
     Route: 048
     Dates: start: 20030122, end: 20051115
  3. SEROQUEL [Suspect]
     Route: 048
     Dates: start: 20030601, end: 20051101
  4. SEROQUEL [Suspect]
     Route: 048
     Dates: start: 20030601, end: 20051101
  5. ZYPREXA [Suspect]
     Indication: BIPOLAR DISORDER
     Route: 048
     Dates: start: 19970811, end: 20040101
  6. ZYPREXA [Suspect]
     Indication: SLEEP DISORDER
     Route: 048
     Dates: start: 19970811, end: 20040101
  7. ZYPREXA [Suspect]
     Indication: ANXIETY
     Route: 048
     Dates: start: 19970811, end: 20040101
  8. ZYPREXA [Suspect]
     Dosage: 10-30 MG
     Route: 048
     Dates: start: 20000101, end: 20051201
  9. ZYPREXA [Suspect]
     Dosage: 10-30 MG
     Route: 048
     Dates: start: 20000101, end: 20051201
  10. ZYPREXA [Suspect]
     Dosage: 10-30 MG
     Route: 048
     Dates: start: 20000101, end: 20051201
  11. ZYPREXA [Suspect]
     Dosage: 10-30MG
     Route: 048
     Dates: start: 20010101, end: 20010213
  12. ZYPREXA [Suspect]
     Dosage: 10-30MG
     Route: 048
     Dates: start: 20010101, end: 20010213
  13. ZYPREXA [Suspect]
     Dosage: 10-30MG
     Route: 048
     Dates: start: 20010101, end: 20010213
  14. RISPERDAL [Suspect]
     Indication: BIPOLAR DISORDER
     Dates: start: 20000701, end: 20000801
  15. RISPERDAL [Suspect]
     Indication: MANIA
     Dates: start: 20000701, end: 20000801
  16. RISPERDAL [Suspect]
     Dosage: 3 MG DISPENSED
     Route: 048
     Dates: start: 20000705
  17. RISPERDAL [Suspect]
     Dosage: 3 MG DISPENSED
     Route: 048
     Dates: start: 20000705
  18. CLOZARIL [Concomitant]
     Route: 048
  19. LITHIUM CARBONATE [Concomitant]
     Dosage: 300-1200 MG
     Route: 048
     Dates: start: 19971104
  20. KLONOPIN [Concomitant]
     Dosage: 0.5 - 3 MG
     Route: 048
     Dates: start: 19940113
  21. BENZTROPINE MESYLATE [Concomitant]
     Dosage: 1 - 2 MG
     Dates: start: 19940113
  22. ZOLOFT [Concomitant]
     Dosage: 100-200 MG AT NIGHT
     Dates: start: 20030624
  23. REGLAN [Concomitant]
     Indication: IMPAIRED GASTRIC EMPTYING
     Dates: start: 20040103
  24. COGENTIN [Concomitant]
     Dosage: 0.2-10 MG
     Route: 048
     Dates: start: 19971104
  25. TYLENOL (CAPLET) [Concomitant]
     Indication: BACK PAIN
     Dosage: PRN
     Dates: start: 20010424
  26. NORVASC [Concomitant]
     Route: 048
     Dates: start: 20040520
  27. TOPAMAX [Concomitant]
     Dosage: 25 MG QHS,AFTER 4 WEEKS,1 IN THE AM 1 AT PM,AFTER 4 WEEKS,1 IN AM 2 AT PM,AFTER 4 WEEKS,2 TABS BID.
     Dates: start: 20040804
  28. ZOCOR [Concomitant]
     Dates: start: 20040209
  29. AMBIEN [Concomitant]
     Indication: SLEEP DISORDER
     Dates: start: 20010501

REACTIONS (14)
  - ABDOMINAL DISCOMFORT [None]
  - BLADDER DISORDER [None]
  - BRADYCARDIA [None]
  - CEREBROVASCULAR ACCIDENT [None]
  - CHEST PAIN [None]
  - DIABETES MELLITUS [None]
  - HAEMORRHOID OPERATION [None]
  - HEMIPARESIS [None]
  - HYPERGLYCAEMIA [None]
  - HYPERTENSIVE HEART DISEASE [None]
  - MYOCARDIAL INFARCTION [None]
  - NEUROPATHY PERIPHERAL [None]
  - SLEEP APNOEA SYNDROME [None]
  - TYPE 2 DIABETES MELLITUS [None]
